FAERS Safety Report 20959305 (Version 1)
Quarter: 2022Q2

REPORT INFORMATION
  Report Type: Spontaneous
  Country: FR (occurrence: FR)
  Receive Date: 20220614
  Receipt Date: 20220614
  Transmission Date: 20220721
  Serious: Yes (Hospitalization)
  Sender: FDA-Public Use
  Company Number: None

PATIENT
  Age: 21 Year
  Sex: Female
  Weight: 62 kg

DRUGS (3)
  1. OXYCODONE HYDROCHLORIDE [Suspect]
     Active Substance: OXYCODONE HYDROCHLORIDE
     Indication: Intentional overdose
     Dosage: 10 DOSAGE FORM
     Route: 048
     Dates: start: 20220504, end: 20220504
  2. MORPHINE SULFATE [Suspect]
     Active Substance: MORPHINE SULFATE
     Indication: Intentional overdose
     Dosage: 20 DOSAGE FORM
     Route: 048
     Dates: start: 20220504, end: 20220504
  3. SKENAN [Suspect]
     Active Substance: MORPHINE SULFATE
     Indication: Intentional overdose
     Dosage: 10 DOSAGE FORM
     Route: 048
     Dates: start: 20220504, end: 20220504

REACTIONS (3)
  - Poisoning deliberate [Recovered/Resolved]
  - Hypoventilation [Recovered/Resolved]
  - Somnolence [Recovered/Resolved]

NARRATIVE: CASE EVENT DATE: 20220504
